FAERS Safety Report 7459962-0 (Version None)
Quarter: 2011Q2

REPORT INFORMATION
  Report Type: 
  Country: None (occurrence: None)
  Receive Date: 20110505
  Receipt Date: 20110427
  Transmission Date: 20111010
  Serious: Yes (Hospitalization)
  Sender: FDA-Public Use
  Company Number: CN-GENZYME-CERZ-1002034

PATIENT
  Sex: Male
  Weight: 58 kg

DRUGS (1)
  1. CEREZYME [Suspect]
     Indication: GAUCHER'S DISEASE
     Dosage: 35 U/KG, UNK
     Route: 042
     Dates: start: 20100701

REACTIONS (6)
  - COUGH [None]
  - CONVULSION [None]
  - PLEURAL EFFUSION [None]
  - NERVOUSNESS [None]
  - BLOOD POTASSIUM DECREASED [None]
  - HYPERHIDROSIS [None]
